FAERS Safety Report 14830524 (Version 3)
Quarter: 2018Q3

REPORT INFORMATION
  Report Type: Spontaneous
  Country: US (occurrence: US)
  Receive Date: 20180430
  Receipt Date: 20180703
  Transmission Date: 20181010
  Serious: No
  Sender: FDA-Public Use
  Company Number: US-SA-2018SA042003

PATIENT
  Age: 61 Year
  Sex: Female

DRUGS (1)
  1. PRALUENT [Suspect]
     Active Substance: ALIROCUMAB
     Indication: PRODUCT USE IN UNAPPROVED INDICATION
     Dosage: 75 MG,QOW
     Route: 058
     Dates: start: 201609

REACTIONS (3)
  - Nasopharyngitis [Unknown]
  - Urinary tract infection [Unknown]
  - Influenza [Recovered/Resolved]
